FAERS Safety Report 9799898 (Version 2)
Quarter: 2014Q1

REPORT INFORMATION
  Report Type: Spontaneous
  Country: HR (occurrence: HR)
  Receive Date: 20140106
  Receipt Date: 20140110
  Transmission Date: 20141002
  Serious: Yes (Other)
  Sender: FDA-Public Use
  Company Number: HR-GLAXOSMITHKLINE-B0957511A

PATIENT
  Age: 12 Year
  Sex: Male
  Weight: 70 kg

DRUGS (2)
  1. FLIXOTIDE [Suspect]
     Indication: ASTHMA
     Dosage: 250MCG PER DAY
     Route: 055
     Dates: start: 20131207, end: 20131208
  2. VENTOLIN [Concomitant]
     Indication: ASTHMA
     Dosage: 100MG TWICE PER DAY
     Route: 055
     Dates: start: 20130311

REACTIONS (2)
  - Pruritus [Recovered/Resolved]
  - Restlessness [Recovered/Resolved]
